FAERS Safety Report 8145064-7 (Version None)
Quarter: 2012Q1

REPORT INFORMATION
  Report Type: 
  Country: None (occurrence: None)
  Receive Date: 20120217
  Receipt Date: 20120207
  Transmission Date: 20120608
  Serious: Yes (Other)
  Sender: FDA-Public Use
  Company Number: PHHY2012BR002570

PATIENT
  Age: 7 Year
  Sex: Female

DRUGS (3)
  1. TEGRETOL [Suspect]
     Indication: CONVULSION
     Dosage: UNK UKN, UNK
  2. TRILEPTAL [Suspect]
     Indication: CONVULSION
     Dosage: 3ML TWICE A DAY, AT NIGHT
  3. TRILEPTAL [Suspect]
     Dosage: 3ML ONCE A DAY, AT NIGHT

REACTIONS (3)
  - BRUXISM [None]
  - PETIT MAL EPILEPSY [None]
  - TENSION [None]
